FAERS Safety Report 24965319 (Version 1)
Quarter: 2025Q1

REPORT INFORMATION
  Report Type: Report from Study
  Country: CO (occurrence: CO)
  Receive Date: 20250213
  Receipt Date: 20250213
  Transmission Date: 20250409
  Serious: Yes (Other)
  Sender: UCB
  Company Number: CO-UCBSA-2025007878

PATIENT
  Age: 26 Year
  Sex: Female

DRUGS (4)
  1. CERTOLIZUMAB PEGOL [Suspect]
     Active Substance: CERTOLIZUMAB PEGOL
     Indication: Ankylosing spondylitis
     Dosage: 400 MILLIGRAM, EV 30 DAYS
     Route: 058
     Dates: start: 20250129
  2. LEVOTHYROXINE [Concomitant]
     Active Substance: LEVOTHYROXINE
     Indication: Product used for unknown indication
  3. GESTAVIT [Concomitant]
     Indication: Product used for unknown indication
  4. CITRAGEL [Concomitant]
     Indication: Product used for unknown indication

REACTIONS (4)
  - Malaise [Not Recovered/Not Resolved]
  - High risk pregnancy [Not Recovered/Not Resolved]
  - Maternal exposure during pregnancy [Unknown]
  - Off label use [Unknown]

NARRATIVE: CASE EVENT DATE: 20250129
